FAERS Safety Report 9316142 (Version 1)
Quarter: 2013Q2

REPORT INFORMATION
  Report Type: Spontaneous
  Country: US (occurrence: US)
  Receive Date: 20130530
  Receipt Date: 20130530
  Transmission Date: 20140414
  Serious: No
  Sender: FDA-Public Use
  Company Number: US-009507513-1305USA014721

PATIENT
  Sex: Male
  Weight: 83.9 kg

DRUGS (5)
  1. VICTRELIS [Suspect]
     Dosage: TAKE 4 CAPSULES BY MOUTH THREE TIMES A DAY 7-9 HOURS APART WITH A SNACK
     Route: 048
  2. PEGASYS [Suspect]
     Dosage: DOSE: 180 MCG/M
  3. RIBAPAK [Suspect]
     Dosage: 1000/DAY
  4. LOTREL [Concomitant]
     Dosage: 2.5-10 MG
  5. HUMALOG [Concomitant]
     Dosage: 75/25KWP

REACTIONS (1)
  - Fatigue [Unknown]
